FAERS Safety Report 5745839-5 (Version None)
Quarter: 2008Q2

REPORT INFORMATION
  Report Type: 
  Country: None (occurrence: None)
  Receive Date: 20080520
  Receipt Date: 20080501
  Transmission Date: 20081010
  Serious: Yes (Death)
  Sender: FDA-Public Use
  Company Number: GXKR2008FR04123

PATIENT
  Age: 49 Year
  Sex: Male

DRUGS (2)
  1. SUCCINYLCHOLINE CHLORIDE [Suspect]
     Indication: ANAESTHESIA
  2. PROPOFOLO [Concomitant]

REACTIONS (6)
  - ANAPHYLACTIC REACTION [None]
  - CARDIAC DISORDER [None]
  - EXTRASYSTOLES [None]
  - HYPOTENSION [None]
  - TACHYCARDIA [None]
  - VENTRICULAR FIBRILLATION [None]
